FAERS Safety Report 4431188-4 (Version None)
Quarter: 2004Q3

REPORT INFORMATION
  Report Type: 
  Country: None (occurrence: None)
  Receive Date: 20040817
  Receipt Date: 20040805
  Transmission Date: 20050211
  Serious: Yes (Other)
  Sender: FDA-Public Use
  Company Number: 2004-0007333

PATIENT
  Sex: Male

DRUGS (4)
  1. VIREAD [Suspect]
     Indication: HIV INFECTION
     Dosage: 300 MG, ORAL
     Route: 048
  2. REYATAZ [Suspect]
     Indication: HIV INFECTION
     Dates: start: 20040716
  3. EPIVIR [Concomitant]
  4. NORVIR [Concomitant]

REACTIONS (5)
  - BLOOD BILIRUBIN INCREASED [None]
  - ERYTHEMA [None]
  - JAUNDICE [None]
  - NAIL DISORDER [None]
  - PARONYCHIA [None]
